FAERS Safety Report 6081584-7 (Version None)
Quarter: 2009Q1

REPORT INFORMATION
  Report Type: 
  Country: None (occurrence: None)
  Receive Date: 20090213
  Receipt Date: 20090209
  Transmission Date: 20090719
  Serious: No
  Sender: FDA-Public Use
  Company Number: TUK2009A00030

PATIENT
  Age: 70 Year
  Sex: Female

DRUGS (5)
  1. ACTOS [Suspect]
     Indication: DIABETES MELLITUS
     Dosage: 30 MG
     Route: 048
     Dates: start: 20081112, end: 20090115
  2. CELECOXIB [Concomitant]
  3. METFORMIN HCL [Concomitant]
  4. NOVOMIX (INSULIN ASPART) [Concomitant]
  5. SIMVASTATIN [Concomitant]

REACTIONS (4)
  - ABDOMINAL DISTENSION [None]
  - FLUID RETENTION [None]
  - OEDEMA PERIPHERAL [None]
  - PERIORBITAL OEDEMA [None]
